FAERS Safety Report 9827765 (Version 1)
Quarter: 2013Q4

REPORT INFORMATION
  Report Type: Spontaneous
  Country: US (occurrence: None)
  Receive Date: 20131120
  Receipt Date: 20131120
  Transmission Date: 20140711
  Serious: No
  Sender: FDA-Public Use
  Company Number: 1000050143

PATIENT
  Age: 21 Year
  Sex: Female

DRUGS (2)
  1. VIIBRYD (VILAZODONE HYDROCHLORIDE) (TABLETS) [Suspect]
     Indication: DEPRESSION
     Route: 048
     Dates: end: 20131013
  2. LAMOTRIGINE(LAMOTRIGINE)(LAMOTRIGINE) [Concomitant]

REACTIONS (1)
  - Prescribed overdose [None]
